FAERS Safety Report 5528573-6 (Version None)
Quarter: 2007Q4

REPORT INFORMATION
  Report Type: 
  Country: None (occurrence: None)
  Receive Date: 20071123
  Receipt Date: 20071112
  Transmission Date: 20080405
  Serious: Yes (Death, Life-Threatening, Disabling, Other)
  Sender: FDA-Public Use
  Company Number: 200711AGG00751

PATIENT
  Age: 55 Year
  Sex: Female

DRUGS (5)
  1. AGGRASTAT [Suspect]
     Indication: ACUTE MYOCARDIAL INFARCTION
     Dosage: (INTRAVENOUS (NOT OTHERWISE SPECIFIED))
     Route: 042
     Dates: start: 20071112, end: 20071112
  2. AGGRASTAT [Suspect]
     Indication: ANGINA UNSTABLE
     Dosage: (INTRAVENOUS (NOT OTHERWISE SPECIFIED))
     Route: 042
     Dates: start: 20071112, end: 20071112
  3. PLAVIX [Concomitant]
  4. ASPIRIN [Concomitant]
  5. CLEXANE [Concomitant]

REACTIONS (1)
  - CARDIOGENIC SHOCK [None]
